FAERS Safety Report 18260940 (Version 1)
Quarter: 2020Q3

REPORT INFORMATION
  Report Type: Spontaneous
  Country: US (occurrence: US)
  Receive Date: 20200914
  Receipt Date: 20200914
  Transmission Date: 20201103
  Serious: No
  Sender: FDA-Public Use
  Company Number: US-BRISTOL-MYERS SQUIBB COMPANY-BMS-2020-072625

PATIENT
  Age: 56 Year
  Sex: Female

DRUGS (3)
  1. HYDROXYUREA. [Suspect]
     Active Substance: HYDROXYUREA
     Dosage: 1000 MILLIGRAM
     Route: 065
  2. HYDROXYUREA. [Suspect]
     Active Substance: HYDROXYUREA
     Indication: ESSENTIAL THROMBOCYTHAEMIA
     Dosage: 500 MILLIGRAM
     Route: 065
     Dates: start: 2016, end: 2017
  3. HYDROXYUREA. [Suspect]
     Active Substance: HYDROXYUREA
     Dosage: 1500 MILLIGRAM
     Route: 065
     Dates: start: 201809

REACTIONS (3)
  - Liver function test increased [Unknown]
  - Intentional product use issue [Unknown]
  - Dermatosis [Not Recovered/Not Resolved]
